FAERS Safety Report 5457518-2 (Version None)
Quarter: 2007Q3

REPORT INFORMATION
  Report Type: 
  Country: None (occurrence: None)
  Receive Date: 20070918
  Receipt Date: 20070906
  Transmission Date: 20080115
  Serious: Yes (Other)
  Sender: FDA-Public Use
  Company Number: US-PFIZER INC-2007074546

PATIENT
  Sex: Male

DRUGS (1)
  1. ZYVOX [Suspect]
     Indication: PNEUMONIA
     Route: 042
     Dates: start: 20070825, end: 20070902

REACTIONS (1)
  - BLOOD CREATINE PHOSPHOKINASE INCREASED [None]
